FAERS Safety Report 12204339 (Version 2)
Quarter: 2016Q2

REPORT INFORMATION
  Report Type: Report from Study
  Country: CN (occurrence: CN)
  Receive Date: 20160323
  Receipt Date: 20160427
  Transmission Date: 20160815
  Serious: Yes (Other)
  Sender: FDA-Public Use
  Company Number: CN-ROCHE-1622837

PATIENT
  Sex: Female
  Weight: 55 kg

DRUGS (3)
  1. AVASTIN [Suspect]
     Active Substance: BEVACIZUMAB
     Route: 041
     Dates: start: 20150901, end: 20160202
  2. AVASTIN [Suspect]
     Active Substance: BEVACIZUMAB
     Indication: COLON CANCER
     Route: 041
     Dates: start: 20140814
  3. AVASTIN [Suspect]
     Active Substance: BEVACIZUMAB
     Route: 041

REACTIONS (8)
  - Haemorrhage [Recovering/Resolving]
  - Condition aggravated [Unknown]
  - Dizziness [Unknown]
  - Tooth socket haemorrhage [Unknown]
  - Neoplasm [Unknown]
  - Platelet count decreased [Unknown]
  - Nasopharyngitis [Unknown]
  - Pyrexia [Unknown]
